FAERS Safety Report 6329151-1 (Version None)
Quarter: 2009Q3

REPORT INFORMATION
  Report Type: 
  Country: None (occurrence: None)
  Receive Date: 20090825
  Receipt Date: 20090825
  Transmission Date: 20100115
  Serious: Yes (Hospitalization)
  Sender: FDA-Public Use
  Company Number: None

PATIENT
  Sex: Female
  Weight: 69.4 kg

DRUGS (6)
  1. DAUNORUBICIN HCL [Suspect]
     Dosage: 135 MG
     Dates: end: 20090724
  2. ONCASPAR [Suspect]
     Dosage: 4425 UNIT
     Dates: end: 20090713
  3. PREDNISONE TAB [Suspect]
     Dosage: 2625 MG
     Dates: end: 20090803
  4. VINCRISTINE SULFATE [Suspect]
     Dosage: 6 MG
     Dates: end: 20090724
  5. CYTARABINE [Suspect]
     Dosage: 70 MG
     Dates: end: 20090710
  6. METHOTREXATE [Suspect]
     Dosage: 15 MG
     Dates: end: 20090717

REACTIONS (13)
  - ACTIVATED PARTIAL THROMBOPLASTIN TIME PROLONGED [None]
  - ASCITES [None]
  - BLOOD BILIRUBIN INCREASED [None]
  - BLOOD GLUCOSE INCREASED [None]
  - CONSTIPATION [None]
  - FIBRIN D DIMER INCREASED [None]
  - HYPOTENSION [None]
  - PALLOR [None]
  - PANCREATIC NECROSIS [None]
  - PANCREATITIS [None]
  - PLEURAL EFFUSION [None]
  - PNEUMOMEDIASTINUM [None]
  - PROTHROMBIN TIME PROLONGED [None]
